FAERS Safety Report 11459203 (Version 2)
Quarter: 2015Q4

REPORT INFORMATION
  Report Type: Not Available
  Country: IT (occurrence: IT)
  Receive Date: 20150904
  Receipt Date: 20151120
  Transmission Date: 20160304
  Serious: Yes (Life-Threatening, Hospitalization)
  Sender: FDA-Public Use
  Company Number: IT-PURDUE PHARMA-GBR-2015-0030598

PATIENT
  Age: 33 Year
  Sex: Male

DRUGS (4)
  1. LARGACTIL                          /00011901/ [Suspect]
     Active Substance: CHLORPROMAZINE
     Indication: DRUG ABUSE
     Dosage: 40 UNIT, SINGLE
     Route: 048
     Dates: start: 20150615, end: 20150615
  2. SOLIAN [Concomitant]
     Active Substance: AMISULPRIDE
     Dosage: 400 MG, BID
     Dates: start: 201504
  3. OXYCONTIN [Suspect]
     Active Substance: OXYCODONE HYDROCHLORIDE
     Indication: DRUG ABUSE
     Dosage: 42 UNIT, SINGLE
     Route: 048
     Dates: start: 20150615, end: 20150615
  4. LARGACTIL                          /00011901/ [Suspect]
     Active Substance: CHLORPROMAZINE
     Dosage: 100 MG, NOCTE
     Route: 048
     Dates: start: 201504

REACTIONS (4)
  - Dermatitis bullous [Recovering/Resolving]
  - Electrocardiogram QT prolonged [Recovering/Resolving]
  - Intentional self-injury [Recovering/Resolving]
  - Coma [Recovering/Resolving]

NARRATIVE: CASE EVENT DATE: 201506
